FAERS Safety Report 9408843 (Version 2)
Quarter: 2013Q3

REPORT INFORMATION
  Report Type: Spontaneous
  Country: JP (occurrence: JP)
  Receive Date: 20130719
  Receipt Date: 20130730
  Transmission Date: 20140515
  Serious: Yes (Life-Threatening, Hospitalization)
  Sender: FDA-Public Use
  Company Number: JP-AMGEN-JPNSP2013050061

PATIENT
  Age: 73 Year
  Sex: Female
  Weight: 42 kg

DRUGS (9)
  1. VECTIBIX [Suspect]
     Indication: RECTAL CANCER RECURRENT
     Dosage: 270 MG, Q2WK
     Route: 041
     Dates: start: 20130624, end: 20130708
  2. LOXONIN [Suspect]
     Indication: CANCER PAIN
     Dosage: 60 MG, 3 DOSE IN 2 WEEKS
     Route: 048
     Dates: start: 20130513, end: 20130709
  3. AMLODIN [Concomitant]
     Indication: HYPERTENSION
     Dosage: 5 MG, Q2WK
     Route: 048
     Dates: start: 20130524, end: 20130709
  4. DIOVAN [Concomitant]
     Indication: HYPERTENSION
     Dosage: 80 MG, Q2WK
     Route: 048
     Dates: start: 20130524, end: 20130709
  5. MUCOSTA [Concomitant]
     Indication: PROPHYLAXIS
     Dosage: 100 MG, 3 DOSES IN 2 WEEKS
     Route: 048
     Dates: start: 20130513, end: 20130709
  6. OXYCONTIN [Concomitant]
     Indication: CANCER PAIN
     Dosage: 10 MG, 2 DOSE IN 2 WEEKS
     Route: 048
     Dates: start: 20130624, end: 20130709
  7. OXINORM                            /00045603/ [Concomitant]
     Indication: CANCER PAIN
     Dosage: 5 MG, UNK
     Route: 048
     Dates: start: 20130624, end: 20130709
  8. SENNOSIDE                          /00571901/ [Concomitant]
     Indication: CONSTIPATION
     Dosage: 24 MG, Q2WK
     Route: 048
     Dates: start: 20130624, end: 20130708
  9. MINOMYCIN [Concomitant]
     Indication: PROPHYLAXIS
     Dosage: 100 MG, Q2WK
     Route: 048
     Dates: start: 20130624, end: 20130709

REACTIONS (1)
  - Duodenal ulcer perforation [Not Recovered/Not Resolved]
